FAERS Safety Report 9456862 (Version 2)
Quarter: 2013Q3

REPORT INFORMATION
  Report Type: Spontaneous
  Country: ZA (occurrence: ZA)
  Receive Date: 20130813
  Receipt Date: 20130919
  Transmission Date: 20140515
  Serious: Yes (Hospitalization)
  Sender: FDA-Public Use
  Company Number: ZA-WATSON-2013-14354

PATIENT
  Age: 71 Year
  Sex: Male

DRUGS (1)
  1. TRELSTAR (WATSON LABORATORIES) [Suspect]
     Indication: PROSTATE CANCER
     Dosage: 22.5 MG ONCE EVERY 6 MONTHS
     Route: 058
     Dates: start: 20120822, end: 20130206

REACTIONS (1)
  - Hip fracture [Recovered/Resolved]
